FAERS Safety Report 5713825-7 (Version None)
Quarter: 2008Q2

REPORT INFORMATION
  Report Type: 
  Country: None (occurrence: None)
  Receive Date: 20080421
  Receipt Date: 20080408
  Transmission Date: 20081010
  Serious: Yes (Hospitalization)
  Sender: FDA-Public Use
  Company Number: US023208

PATIENT
  Sex: Male

DRUGS (5)
  1. PROVIGIL [Suspect]
     Indication: SLEEP DISORDER
     Dosage: 200 MG QD ORAL
     Route: 048
     Dates: start: 20070920, end: 20080313
  2. TOPROL-XL [Suspect]
  3. LIPITOR [Suspect]
  4. FLOMAX [Suspect]
  5. KLONOPIN [Suspect]
     Dosage: 0.5 MG 1/2 TO 1 TABLET DAILY ORAL
     Route: 048

REACTIONS (2)
  - EPISTAXIS [None]
  - NONSPECIFIC REACTION [None]
